FAERS Safety Report 7033977-9 (Version None)
Quarter: 2010Q4

REPORT INFORMATION
  Report Type: 
  Country: None (occurrence: None)
  Receive Date: 20101005
  Receipt Date: 20100922
  Transmission Date: 20110411
  Serious: Yes (Hospitalization)
  Sender: FDA-Public Use
  Company Number: US-003766

PATIENT
  Sex: Male

DRUGS (7)
  1. PROSED/DS (NOT SPECIFIED) [Suspect]
     Indication: URINARY TRACT INFECTION
     Dosage: (3 TABLETS IN 12 HOUR ORAL)
     Route: 048
     Dates: start: 20100921
  2. DEPAKOTE [Concomitant]
  3. KLONOPIN [Concomitant]
  4. GABAPENTIN [Concomitant]
  5. CYMBALTA [Concomitant]
  6. CIPROFLOXACIN 1A FARMA [Concomitant]
  7. DILAUDID [Concomitant]

REACTIONS (4)
  - CHEST PAIN [None]
  - NAUSEA [None]
  - PALPITATIONS [None]
  - URINARY RETENTION [None]
